FAERS Safety Report 9607604 (Version 2)
Quarter: 2014Q3

REPORT INFORMATION
  Report Type: Report from Study
  Country: JP (occurrence: JP)
  Receive Date: 20131009
  Receipt Date: 20140708
  Transmission Date: 20150326
  Serious: Yes (Death, Other)
  Sender: FDA-Public Use
  Company Number: PHHY2013JP111678

PATIENT
  Age: 40 Year
  Sex: Female

DRUGS (10)
  1. BENAMBAX [Concomitant]
     Active Substance: PENTAMIDINE
     Indication: PROPHYLAXIS
     Dosage: 300 MG
     Route: 055
     Dates: start: 20120126, end: 20121115
  2. EQUA [Concomitant]
     Active Substance: VILDAGLIPTIN
     Dosage: 100 MG
     Route: 048
     Dates: end: 20121031
  3. AMARYL [Concomitant]
     Active Substance: GLIMEPIRIDE
     Dosage: 3 MG
     Route: 048
     Dates: end: 20121031
  4. DIOVAN [Concomitant]
     Active Substance: VALSARTAN
     Dosage: 40 MG
     Route: 048
  5. AMARYL [Concomitant]
     Active Substance: GLIMEPIRIDE
     Dosage: 2 MG
     Route: 048
  6. AFINITOR [Suspect]
     Active Substance: EVEROLIMUS
     Dosage: 10 MG PER DAY
     Route: 048
     Dates: start: 20120523, end: 20121004
  7. AFINITOR [Suspect]
     Active Substance: EVEROLIMUS
     Dosage: 10 MG PER DAY
     Route: 048
     Dates: start: 20121019, end: 20121031
  8. AFINITOR [Suspect]
     Active Substance: EVEROLIMUS
     Indication: PANCREATIC NEUROENDOCRINE TUMOUR
     Dosage: 10 MG PER DAY
     Route: 048
     Dates: start: 20120119, end: 20120510
  9. MEPTIN AIR [Concomitant]
     Indication: PROPHYLAXIS
     Dosage: 20 UG
     Route: 065
  10. AMARYL [Concomitant]
     Active Substance: GLIMEPIRIDE
     Dosage: 1 MG
     Route: 048
     Dates: start: 20120412

REACTIONS (10)
  - Gamma-glutamyltransferase increased [Unknown]
  - Lymphocyte count decreased [Unknown]
  - Alanine aminotransferase increased [Unknown]
  - Hypophosphataemia [Unknown]
  - White blood cell count decreased [Unknown]
  - Aspartate aminotransferase increased [Unknown]
  - Blood alkaline phosphatase increased [Unknown]
  - C-reactive protein increased [Unknown]
  - Blood glucose increased [Unknown]
  - Malignant neoplasm progression [Fatal]

NARRATIVE: CASE EVENT DATE: 20121101
